FAERS Safety Report 5123029-7 (Version None)
Quarter: 2006Q4

REPORT INFORMATION
  Report Type: 
  Country: None (occurrence: None)
  Receive Date: 20061005
  Receipt Date: 20060926
  Transmission Date: 20070319
  Serious: Yes (Hospitalization, Other)
  Sender: FDA-Public Use
  Company Number: 2006AL002929

PATIENT
  Age: 0 Year
  Sex: Female

DRUGS (1)
  1. PHENYTOIN [Suspect]
     Indication: EPILEPSY
     Dosage: 125 MG; BID; PO
     Route: 048
     Dates: start: 20060503

REACTIONS (1)
  - DRUG LEVEL INCREASED [None]
